FAERS Safety Report 4704499-2 (Version None)
Quarter: 2005Q2

REPORT INFORMATION
  Report Type: 
  Country: None (occurrence: None)
  Receive Date: 20050628
  Receipt Date: 20050613
  Transmission Date: 20051028
  Serious: Yes (Other)
  Sender: FDA-Public Use
  Company Number: DE_050616162

PATIENT
  Age: 51 Year
  Sex: Female

DRUGS (3)
  1. CYMBALTA [Suspect]
     Indication: DEPRESSION
     Dosage: 30 MG DAY
     Dates: start: 20050603, end: 20050610
  2. OXCARBAZEPINE [Concomitant]
  3. LORAZEPAM [Concomitant]

REACTIONS (1)
  - EPILEPSY [None]
